FAERS Safety Report 24688940 (Version 2)
Quarter: 2024Q4

REPORT INFORMATION
  Report Type: Report from Study
  Country: GB (occurrence: GB)
  Receive Date: 20241203
  Receipt Date: 20241213
  Transmission Date: 20250114
  Serious: Yes (Other)
  Sender: SANDOZ
  Company Number: GB-SANDOZ-SDZ2024GB099076

PATIENT
  Sex: Female

DRUGS (1)
  1. OMNITROPE [Suspect]
     Active Substance: SOMATROPIN
     Indication: Growth hormone deficiency
     Dosage: 0.2 MG
     Route: 058

REACTIONS (7)
  - Brain neoplasm [Not Recovered/Not Resolved]
  - Malaise [Unknown]
  - Lymphadenopathy [Unknown]
  - Axillary mass [Unknown]
  - Arthritis [Unknown]
  - Osteoporosis [Unknown]
  - Pain in extremity [Unknown]
